FAERS Safety Report 11256004 (Version 1)
Quarter: 2015Q3

REPORT INFORMATION
  Report Type: Spontaneous
  Country: US (occurrence: US)
  Receive Date: 20150709
  Receipt Date: 20150709
  Transmission Date: 20151125
  Serious: No
  Sender: FDA-Public Use
  Company Number: US-ASTRAZENECA-2015SE64127

PATIENT
  Sex: Female

DRUGS (13)
  1. ELAVIL [Concomitant]
     Active Substance: AMITRIPTYLINE HYDROCHLORIDE
  2. NORFLEX [Concomitant]
     Active Substance: ORPHENADRINE CITRATE
  3. TYLENOL WITH CODEINE [Concomitant]
     Active Substance: ACETAMINOPHEN\CODEINE PHOSPHATE
  4. AMARYL [Concomitant]
     Active Substance: GLIMEPIRIDE
  5. AROMASIN [Suspect]
     Active Substance: EXEMESTANE
     Dosage: 25 MG ONE TABLET BY MOUTH ONCE DAILY
     Route: 065
     Dates: start: 20150506
  6. CRESTOR [Suspect]
     Active Substance: ROSUVASTATIN CALCIUM
     Route: 048
  7. KEPPRA [Concomitant]
     Active Substance: LEVETIRACETAM
  8. ALDACTONE [Concomitant]
     Active Substance: SPIRONOLACTONE
  9. COLACE [Concomitant]
     Active Substance: DOCUSATE SODIUM
  10. PRINIVIL [Concomitant]
     Active Substance: LISINOPRIL
  11. LASIX [Concomitant]
     Active Substance: FUROSEMIDE
  12. TOPROL XL [Concomitant]
     Active Substance: METOPROLOL SUCCINATE
  13. ZOFRAN [Concomitant]
     Active Substance: ONDANSETRON HYDROCHLORIDE

REACTIONS (2)
  - Pain [Unknown]
  - Muscle spasms [Unknown]
